FAERS Safety Report 8180799-1 (Version None)
Quarter: 2012Q1

REPORT INFORMATION
  Report Type: 
  Country: None (occurrence: None)
  Receive Date: 20120302
  Receipt Date: 20120216
  Transmission Date: 20120608
  Serious: Yes (Death)
  Sender: FDA-Public Use
  Company Number: US-ROCHE-1044931

PATIENT

DRUGS (2)
  1. RITUXIMAB [Suspect]
     Indication: NEOPLASM MALIGNANT
  2. RITUXIMAB [Suspect]
     Indication: AUTOIMMUNE DISORDER

REACTIONS (1)
  - PROGRESSIVE MULTIFOCAL LEUKOENCEPHALOPATHY [None]
